FAERS Safety Report 15108475 (Version 7)
Quarter: 2018Q4

REPORT INFORMATION
  Report Type: Report from Study
  Country: DE (occurrence: DE)
  Receive Date: 20180705
  Receipt Date: 20181227
  Transmission Date: 20190204
  Serious: Yes (Death, Other)
  Sender: FDA-Public Use
  Company Number: DE-BRISTOL-MYERS SQUIBB COMPANY-BMS-2017-101859

PATIENT
  Age: 75 Year
  Sex: Female
  Weight: 74 kg

DRUGS (8)
  1. FUROSEMID                          /00032601/ [Concomitant]
     Active Substance: FUROSEMIDE
     Indication: MALIGNANT NEOPLASM PROGRESSION
     Dosage: 40 MG, UNK
     Route: 065
     Dates: start: 20180206, end: 201802
  2. MCP [Concomitant]
     Active Substance: METOCLOPRAMIDE HYDROCHLORIDE
     Indication: MALIGNANT NEOPLASM PROGRESSION
     Dosage: 10 MG, UNK
     Route: 065
     Dates: start: 20180206, end: 201802
  3. PANTOPRAZOL                        /01263201/ [Concomitant]
     Active Substance: PANTOPRAZOLE
     Indication: PROPHYLAXIS
     Dosage: 40 MG, UNK
     Route: 065
     Dates: end: 20180226
  4. RAMIPRIL. [Concomitant]
     Active Substance: RAMIPRIL
     Indication: PRODUCT USED FOR UNKNOWN INDICATION
     Dosage: 5 MG, UNK
     Route: 065
     Dates: end: 20180226
  5. TAVOR (LORAZEPAM) [Concomitant]
     Active Substance: LORAZEPAM
     Indication: MALIGNANT NEOPLASM PROGRESSION
     Dosage: 2.5 MG, UNK
     Route: 065
     Dates: start: 20180206, end: 201802
  6. NIVOLUMAB [Suspect]
     Active Substance: NIVOLUMAB
     Indication: METASTATIC RENAL CELL CARCINOMA
     Dosage: 3 MG/KG, Q2WK
     Route: 042
     Dates: start: 20170721
  7. NOVAMINSULFON [Concomitant]
     Active Substance: METAMIZOLE
     Indication: PRODUCT USED FOR UNKNOWN INDICATION
     Dosage: UNK
     Route: 065
     Dates: start: 20170809, end: 201709
  8. DIAZEPAN [Concomitant]
     Active Substance: DIAZEPAM
     Indication: MALIGNANT NEOPLASM PROGRESSION
     Dosage: 10 MG, UNK
     Route: 065
     Dates: start: 20180206, end: 201802

REACTIONS (16)
  - Headache [Unknown]
  - Dysgeusia [Not Recovered/Not Resolved]
  - Alopecia [Not Recovered/Not Resolved]
  - Pain in jaw [Unknown]
  - Temporomandibular joint syndrome [Unknown]
  - Left ventricular failure [Unknown]
  - Weight decreased [Unknown]
  - Constipation [Recovered/Resolved]
  - Skin disorder [Not Recovered/Not Resolved]
  - Malignant neoplasm progression [Fatal]
  - Nausea [Unknown]
  - Skin reaction [Unknown]
  - Cardiac failure [Not Recovered/Not Resolved]
  - Diarrhoea [Recovered/Resolved]
  - Pain in extremity [Not Recovered/Not Resolved]
  - Pyrexia [Unknown]

NARRATIVE: CASE EVENT DATE: 20170726
